FAERS Safety Report 7319738-1 (Version None)
Quarter: 2011Q1

REPORT INFORMATION
  Report Type: 
  Country: None (occurrence: None)
  Receive Date: 20110228
  Receipt Date: 20100831
  Transmission Date: 20110831
  Serious: No
  Sender: FDA-Public Use
  Company Number: A0878650A

PATIENT
  Age: 55 Year
  Sex: Male

DRUGS (5)
  1. PROTONIX [Concomitant]
  2. KLONOPIN [Concomitant]
  3. LIPITOR [Concomitant]
  4. LAMOTRIGINE [Suspect]
     Indication: BIPOLAR DISORDER
     Dosage: 25MG PER DAY
     Route: 048
     Dates: start: 20100818, end: 20100828
  5. XOPENEX [Concomitant]
     Route: 055

REACTIONS (5)
  - ASTHENIA [None]
  - AGITATION [None]
  - FATIGUE [None]
  - ANXIETY [None]
  - INSOMNIA [None]
